FAERS Safety Report 9450529 (Version 2)
Quarter: 2013Q4

REPORT INFORMATION
  Report Type: Spontaneous
  Country: US (occurrence: US)
  Receive Date: 20130809
  Receipt Date: 20131204
  Transmission Date: 20140711
  Serious: Yes (Hospitalization)
  Sender: FDA-Public Use
  Company Number: US-GLAXOSMITHKLINE-A0817347A

PATIENT
  Age: 77 Year
  Sex: Female

DRUGS (1)
  1. AVANDIA [Suspect]
     Indication: TYPE 2 DIABETES MELLITUS
     Dosage: 4MG PER DAY
     Route: 048
     Dates: start: 2001, end: 200611

REACTIONS (8)
  - Cardiac failure congestive [Unknown]
  - Liver injury [Unknown]
  - Renal failure [Unknown]
  - Traumatic lung injury [Unknown]
  - Cardiac disorder [Unknown]
  - Bladder disorder [Unknown]
  - Lung disorder [Unknown]
  - Pulmonary hypertension [Unknown]
